FAERS Safety Report 6620993-1 (Version None)
Quarter: 2010Q1

REPORT INFORMATION
  Report Type: 
  Country: None (occurrence: None)
  Receive Date: 20100309
  Receipt Date: 20100225
  Transmission Date: 20100710
  Serious: Yes (Other)
  Sender: FDA-Public Use
  Company Number: PHHY2010CH11077

PATIENT
  Age: 46 Year
  Sex: Female

DRUGS (2)
  1. GLEEVEC [Suspect]
     Indication: CHRONIC MYELOID LEUKAEMIA
     Dosage: 500-600 MG/D
     Route: 048
     Dates: start: 20081001
  2. DIURETICS [Concomitant]

REACTIONS (3)
  - CONDITION AGGRAVATED [None]
  - GINGIVAL RECESSION [None]
  - TOOTH LOSS [None]
